FAERS Safety Report 24030265 (Version 2)
Quarter: 2024Q3

REPORT INFORMATION
  Report Type: Spontaneous
  Country: GB (occurrence: None)
  Receive Date: 20240628
  Receipt Date: 20240703
  Transmission Date: 20241017
  Serious: Yes (Other)
  Sender: ASTRAZENECA
  Company Number: 2024A145082

PATIENT
  Age: 28793 Day
  Sex: Male
  Weight: 66 kg

DRUGS (3)
  1. CALQUENCE [Suspect]
     Active Substance: ACALABRUTINIB
     Indication: Chronic lymphocytic leukaemia
     Route: 048
     Dates: start: 20230330, end: 20230927
  2. COTRIMOXAZOLE [Concomitant]
     Active Substance: SULFAMETHOXAZOLE\TRIMETHOPRIM
     Indication: Prophylaxis
     Dosage: 960MG M/W/FR
     Route: 048
     Dates: start: 20230330, end: 20230927
  3. LOPERAMIDE [Concomitant]
     Active Substance: LOPERAMIDE
     Indication: Diarrhoea
     Dosage: 2MG QDS PRN
     Route: 048
     Dates: start: 20230330, end: 20230927

REACTIONS (3)
  - Malignant neoplasm progression [Recovered/Resolved]
  - White blood cell count increased [Unknown]
  - Splenomegaly [Unknown]

NARRATIVE: CASE EVENT DATE: 20230927
